FAERS Safety Report 9244795 (Version 1)
Quarter: 2013Q2

REPORT INFORMATION
  Report Type: Report from Study
  Country: CA (occurrence: CA)
  Receive Date: 20130422
  Receipt Date: 20130422
  Transmission Date: 20140414
  Serious: Yes (Other)
  Sender: FDA-Public Use
  Company Number: CA-JNJFOC-20130408354

PATIENT
  Age: 24 Year
  Sex: Female
  Weight: 127.2 kg

DRUGS (1)
  1. REMICADE [Suspect]
     Indication: CROHN^S DISEASE
     Route: 042
     Dates: start: 20111222

REACTIONS (2)
  - Haematochezia [Not Recovered/Not Resolved]
  - Subcutaneous abscess [Recovered/Resolved]
